FAERS Safety Report 7243457-3 (Version None)
Quarter: 2011Q1

REPORT INFORMATION
  Report Type: 
  Country: None (occurrence: None)
  Receive Date: 20110119
  Receipt Date: 20110119
  Transmission Date: 20110831
  Serious: No
  Sender: FDA-Public Use
  Company Number: None

PATIENT
  Age: 55 Year
  Sex: Male
  Weight: 58.9676 kg

DRUGS (2)
  1. GEDEON [Concomitant]
  2. RISPERDAL [Suspect]
     Indication: SCHIZOPHRENIA

REACTIONS (4)
  - CARDIAC DISORDER [None]
  - NERVOUS SYSTEM DISORDER [None]
  - MENTAL DISORDER [None]
  - POLLAKIURIA [None]
